FAERS Safety Report 8801748 (Version 2)
Quarter: 2015Q2

REPORT INFORMATION
  Report Type: Report from Study
  Country: US (occurrence: US)
  Receive Date: 20120921
  Receipt Date: 20150620
  Transmission Date: 20150821
  Serious: Yes (Death)
  Sender: FDA-Public Use
  Company Number: US-ROCHE-1127626

PATIENT
  Sex: Female
  Weight: 52.66 kg

DRUGS (17)
  1. AVASTIN [Suspect]
     Active Substance: BEVACIZUMAB
     Route: 042
     Dates: start: 20060815
  2. AVASTIN [Suspect]
     Active Substance: BEVACIZUMAB
     Dosage: NEXT DOSES WERE ADMINISTERED ON 29/JAN/2007 AND 01/FEB/2007,
     Route: 042
     Dates: start: 20070118
  3. CISPLATIN. [Concomitant]
     Active Substance: CISPLATIN
     Route: 065
  4. GEMZAR [Concomitant]
     Active Substance: GEMCITABINE HYDROCHLORIDE
     Route: 042
  5. AVASTIN [Suspect]
     Active Substance: BEVACIZUMAB
     Dosage: NEXT DOSES WERE ADMINISTERED ON 05/DEC/2006, 19/DEC/2006 AND 05/JAN/2007.
     Route: 042
     Dates: start: 20061127
  6. TARCEVA [Suspect]
     Active Substance: ERLOTINIB HYDROCHLORIDE
     Indication: PANCREATIC CARCINOMA
     Route: 048
  7. TARCEVA [Suspect]
     Active Substance: ERLOTINIB HYDROCHLORIDE
     Route: 048
  8. GEMZAR [Concomitant]
     Active Substance: GEMCITABINE HYDROCHLORIDE
     Route: 065
  9. AVASTIN [Suspect]
     Active Substance: BEVACIZUMAB
     Indication: PANCREATIC CARCINOMA
     Dosage: NEXT DOSES WERE ADMINISTERED ON 28/AUG/2006, 11/SEP/2006, 25/SEP/2006, 09/OCT/2006 AND 06/NOV/2006.
     Route: 042
     Dates: start: 20060731
  10. GEMZAR [Concomitant]
     Active Substance: GEMCITABINE HYDROCHLORIDE
     Route: 065
  11. CISPLATIN. [Concomitant]
     Active Substance: CISPLATIN
     Route: 065
  12. CISPLATIN. [Concomitant]
     Active Substance: CISPLATIN
     Route: 042
  13. TARCEVA [Suspect]
     Active Substance: ERLOTINIB HYDROCHLORIDE
     Route: 048
     Dates: start: 20061214
  14. GEMZAR [Concomitant]
     Active Substance: GEMCITABINE HYDROCHLORIDE
     Route: 065
  15. CISPLATIN. [Concomitant]
     Active Substance: CISPLATIN
     Route: 065
  16. COUMADIN [Concomitant]
     Active Substance: WARFARIN SODIUM
  17. CISPLATIN. [Concomitant]
     Active Substance: CISPLATIN
     Route: 065

REACTIONS (1)
  - Death [Fatal]
